FAERS Safety Report 12853364 (Version 1)
Quarter: 2016Q4

REPORT INFORMATION
  Report Type: Spontaneous
  Country: US (occurrence: US)
  Receive Date: 20161017
  Receipt Date: 20161017
  Transmission Date: 20170207
  Serious: No
  Sender: FDA-Public Use
  Company Number: US-PAR PHARMACEUTICAL, INC-2016SCPR015170

PATIENT

DRUGS (6)
  1. LEXAPRO [Concomitant]
     Active Substance: ESCITALOPRAM OXALATE
     Indication: FIBROMYALGIA
     Dosage: UNK, OD
     Route: 048
  2. CHOLESTYRAMINE. [Suspect]
     Active Substance: CHOLESTYRAMINE
     Indication: DIARRHOEA
     Dosage: ONE PACKET, BID
     Route: 048
     Dates: start: 20160203
  3. SKELAXIN [Concomitant]
     Active Substance: METAXALONE
     Indication: MUSCLE SPASMS
     Dosage: UNK, OD
     Route: 048
     Dates: start: 2001
  4. PLATINUM MULTIVITAMINS [Concomitant]
     Indication: BLOOD CALCIUM ABNORMAL
     Dosage: UNK, UNKNOWN
     Route: 048
  5. GABAPENTIN. [Concomitant]
     Active Substance: GABAPENTIN
     Indication: FIBROMYALGIA
     Dosage: UNK, HS
     Route: 048
  6. CELEBREX [Concomitant]
     Active Substance: CELECOXIB
     Indication: FIBROMYALGIA
     Dosage: UNK, BID
     Route: 048
     Dates: start: 2002

REACTIONS (3)
  - Product use issue [Unknown]
  - Product taste abnormal [Unknown]
  - Product solubility abnormal [Unknown]

NARRATIVE: CASE EVENT DATE: 20160203
